FAERS Safety Report 11173390 (Version 2)
Quarter: 2015Q4

REPORT INFORMATION
  Report Type: Spontaneous
  Country: TW (occurrence: TW)
  Receive Date: 20150608
  Receipt Date: 20151029
  Transmission Date: 20160304
  Serious: Yes (Other)
  Sender: FDA-Public Use
  Company Number: TW-AMGEN-TWNSP2015055107

PATIENT
  Age: 59 Year
  Sex: Female

DRUGS (1)
  1. ENBREL [Suspect]
     Active Substance: ETANERCEPT
     Indication: RHEUMATOID ARTHRITIS
     Dosage: 50 MG, WEEKLY
     Route: 058
     Dates: start: 201410

REACTIONS (6)
  - Chest X-ray abnormal [Unknown]
  - Bronchiectasis [Unknown]
  - Sciatica [Not Recovered/Not Resolved]
  - Arthralgia [Unknown]
  - Lung infiltration [Unknown]
  - Pain [Unknown]

NARRATIVE: CASE EVENT DATE: 2015
